FAERS Safety Report 7522448-9 (Version None)
Quarter: 2011Q2

REPORT INFORMATION
  Report Type: 
  Country: None (occurrence: None)
  Receive Date: 20110525
  Receipt Date: 20110510
  Transmission Date: 20111010
  Serious: Yes (Death, Hospitalization, Other)
  Sender: FDA-Public Use
  Company Number: 2011MA005748

PATIENT
  Age: 48 Year
  Sex: Male

DRUGS (2)
  1. CYCLOPHOSPHAMIDE [Concomitant]
  2. FLUDARABINE PHOSPHATE [Suspect]
     Indication: BONE MARROW TRANSPLANT
     Dosage: 38.5 MG/M2;OD;IV
     Route: 042

REACTIONS (5)
  - LEUKOENCEPHALOPATHY [None]
  - VISUAL IMPAIRMENT [None]
  - RETINAL EXUDATES [None]
  - NEUROTOXICITY [None]
  - MUSCULAR WEAKNESS [None]
